FAERS Safety Report 5218709-9 (Version None)
Quarter: 2007Q1

REPORT INFORMATION
  Report Type: 
  Country: None (occurrence: None)
  Receive Date: 20070122
  Receipt Date: 20070105
  Transmission Date: 20070707
  Serious: Yes (Hospitalization)
  Sender: FDA-Public Use
  Company Number: 2006RL000437

PATIENT
  Age: 36 Year
  Sex: Male
  Weight: 116.5744 kg

DRUGS (9)
  1. OMACOR [Suspect]
     Indication: DRUG USE FOR UNKNOWN INDICATION
     Dosage: 2 GM;QD;PO
     Route: 048
     Dates: start: 20061012, end: 20061101
  2. RHINOCORT /00614601/ [Concomitant]
  3. ZYRTEC [Concomitant]
  4. ENTEX LA /00922801/ [Concomitant]
  5. CARDIZEM [Concomitant]
  6. TENORETIC 100 [Concomitant]
  7. POTASSIUM ACETATE [Concomitant]
  8. ZANTAC [Concomitant]
  9. SINGULAIR /01362601/ [Concomitant]

REACTIONS (8)
  - DIARRHOEA [None]
  - DIZZINESS [None]
  - DRY MOUTH [None]
  - GASTRITIS [None]
  - HEPATITIS ACUTE [None]
  - HYPOKALAEMIA [None]
  - ORAL INTAKE REDUCED [None]
  - PANCREATITIS [None]
